FAERS Safety Report 7502708-8 (Version None)
Quarter: 2011Q2

REPORT INFORMATION
  Report Type: 
  Country: None (occurrence: None)
  Receive Date: 20110525
  Receipt Date: 20110511
  Transmission Date: 20111010
  Serious: Yes (Other)
  Sender: FDA-Public Use
  Company Number: PHHY2011BR41736

PATIENT
  Sex: Female
  Weight: 63 kg

DRUGS (8)
  1. RASILEZ HCT [Suspect]
     Dosage: 300/25MG, 1 TABLET DAILY
     Route: 048
  2. CALCIUM CARBONATE [Concomitant]
     Indication: BONE PAIN
     Dosage: 1 TABLET A DAY
     Dates: start: 20110511
  3. ALPRAZOLAM [Concomitant]
     Indication: ANXIETY
     Dosage: 1 TABLET DAILY
     Route: 048
  4. FLUOXETINE [Concomitant]
     Dosage: 20 MG, UNK
  5. RASILEZ HCT [Suspect]
     Dosage: 300/25MG, 1 TABLET DAILY
     Route: 048
  6. ATENOLOL [Concomitant]
     Dosage: 1 TABLET DAILY
  7. RASILEZ HCT [Suspect]
     Dosage: 300/12.5MG, 1 TABLET DAILY
     Route: 048
  8. IRBESARTAN [Concomitant]
     Indication: HYPERTENSION
     Dosage: 1 TABLET DAILY

REACTIONS (3)
  - BLOOD PRESSURE INCREASED [None]
  - INCORRECT DOSE ADMINISTERED [None]
  - MALAISE [None]
